FAERS Safety Report 18108946 (Version 6)
Quarter: 2022Q3

REPORT INFORMATION
  Report Type: Spontaneous
  Country: US (occurrence: US)
  Receive Date: 20200804
  Receipt Date: 20220802
  Transmission Date: 20221027
  Serious: Yes (Other)
  Sender: FDA-Public Use
  Company Number: US-PFIZER INC-2020292804

PATIENT
  Age: 62 Year
  Sex: Female
  Weight: 106.14 kg

DRUGS (13)
  1. XELJANZ XR [Suspect]
     Active Substance: TOFACITINIB CITRATE
     Indication: Rheumatoid arthritis
     Dosage: 11 MG (30 TAB BOTTLE)
  2. XELJANZ XR [Suspect]
     Active Substance: TOFACITINIB CITRATE
     Dosage: 11 MG, 1X/DAY
  3. METHOTREXATE [Concomitant]
     Active Substance: METHOTREXATE
     Indication: Rheumatoid arthritis
     Dosage: 25 MG, WEEKLY (2.5MG TABLETS, TAKES 10 TABLETS EVERY 7 DAYS)
  4. GABAPENTIN [Concomitant]
     Active Substance: GABAPENTIN
     Indication: Gout
     Dosage: 800 MG, 3X/DAY
  5. GABAPENTIN [Concomitant]
     Active Substance: GABAPENTIN
     Indication: Osteoarthritis
  6. GABAPENTIN [Concomitant]
     Active Substance: GABAPENTIN
     Indication: Neuropathy peripheral
  7. DULOXETINE [Concomitant]
     Active Substance: DULOXETINE
     Indication: Gout
     Dosage: 60 MG, 2X/DAY
  8. DULOXETINE [Concomitant]
     Active Substance: DULOXETINE
     Indication: Neuropathy peripheral
  9. HYSINGLA ER [Concomitant]
     Active Substance: HYDROCODONE BITARTRATE
     Indication: Pain
     Dosage: 40 MG, 1X/DAY
  10. HYDROCODONE [Concomitant]
     Active Substance: HYDROCODONE
     Indication: Pain
     Dosage: (10/325MG TABLET, 1 TABLET EVERY 6 HOURS AS NEEDED )
  11. CYCLOBENZAPRINE [Concomitant]
     Active Substance: CYCLOBENZAPRINE
     Indication: Pain
     Dosage: 10 MG, 3X/DAY
  12. HYDROXYZINE HYDROCHLORIDE [Concomitant]
     Active Substance: HYDROXYZINE HYDROCHLORIDE
     Indication: Pruritus
     Dosage: 25 MG, AS NEEDED (1 TABLET TWICE DAILY AS NEEDED)
  13. BUPROPION HYDROCHLORIDE XL [Concomitant]
     Active Substance: BUPROPION HYDROCHLORIDE
     Indication: Neuropathy peripheral
     Dosage: 300 MG, 1X/DAY

REACTIONS (14)
  - Nerve injury [Unknown]
  - Malaise [Unknown]
  - Pain [Recovering/Resolving]
  - Hypoacusis [Unknown]
  - Dysphonia [Unknown]
  - Headache [Unknown]
  - Memory impairment [Unknown]
  - Fatigue [Unknown]
  - Tremor [Unknown]
  - Feeling abnormal [Unknown]
  - Arthralgia [Unknown]
  - Back pain [Unknown]
  - Fall [Unknown]
  - Anxiety [Unknown]

NARRATIVE: CASE EVENT DATE: 20220401
